FAERS Safety Report 13857534 (Version 3)
Quarter: 2018Q3

REPORT INFORMATION
  Report Type: Spontaneous
  Country: IT (occurrence: IT)
  Receive Date: 20170811
  Receipt Date: 20180813
  Transmission Date: 20181010
  Serious: Yes (Other)
  Sender: FDA-Public Use
  Company Number: PHHY2017IT116530

PATIENT
  Age: 66 Year
  Sex: Female

DRUGS (6)
  1. PARACETAMOL [Suspect]
     Active Substance: ACETAMINOPHEN
     Indication: INTERVERTEBRAL DISC DISORDER
     Dosage: 1 UG, PRN
     Route: 048
     Dates: start: 20170720, end: 20170725
  2. NIMESULIDE [Suspect]
     Active Substance: NIMESULIDE
     Indication: INTERVERTEBRAL DISC DISORDER
     Dosage: 1 UG, PRN
     Route: 048
     Dates: start: 20170720, end: 20170725
  3. EUTIROX [Concomitant]
     Active Substance: LEVOTHYROXINE SODIUM
     Indication: PRODUCT USED FOR UNKNOWN INDICATION
     Dosage: UNK
     Route: 065
  4. NEBIVOLOL. [Concomitant]
     Active Substance: NEBIVOLOL
     Indication: PRODUCT USED FOR UNKNOWN INDICATION
     Dosage: UNK
     Route: 065
  5. IBUPROFEN. [Suspect]
     Active Substance: IBUPROFEN
     Indication: INTERVERTEBRAL DISC DISORDER
     Dosage: 1 UG, PRN
     Route: 048
     Dates: start: 20170720, end: 20170725
  6. ACETYLSALICYLIC ACID [Concomitant]
     Active Substance: ASPIRIN
     Indication: PRODUCT USED FOR UNKNOWN INDICATION
     Dosage: 100 MG, UNK
     Route: 065

REACTIONS (4)
  - Abdominal distension [Recovering/Resolving]
  - Dyspepsia [Recovering/Resolving]
  - Nausea [Recovering/Resolving]
  - Abdominal pain upper [Recovering/Resolving]

NARRATIVE: CASE EVENT DATE: 20170725
